FAERS Safety Report 4960962-0 (Version None)
Quarter: 2006Q1

REPORT INFORMATION
  Report Type: 
  Country: None (occurrence: None)
  Receive Date: 20060328
  Receipt Date: 20060316
  Transmission Date: 20060701
  Serious: No
  Sender: FDA-Public Use
  Company Number: 06H-087-0306656-00

PATIENT
  Age: 36 Year
  Sex: Female
  Weight: 66 kg

DRUGS (11)
  1. MAGNESIUM SULFATE [Suspect]
     Indication: CONVULSION PROPHYLAXIS
     Dosage: INTRAVENOUS
     Route: 042
  2. VECURONIUM BROMIDE                       (VECURONIUM FOR INJECTION) [Suspect]
     Indication: NEUROMUSCULAR BLOCKADE
     Dosage: 3 MG, INTRAVENOUS
     Route: 042
  3. HYDRALAZINE HCL [Concomitant]
  4. THIOPENTAL SODIUM [Concomitant]
  5. SUCCINYLCHOLINE CHLORIDE [Concomitant]
  6. 60% NITROUS OXIDE (NITROUS OXIDE) [Concomitant]
  7. OXYGEN (OXYGEN) [Concomitant]
  8. PENTAZOCINE LACTATE [Concomitant]
  9. DROPERIDOL [Concomitant]
  10. PROPOFOL [Concomitant]
  11. FENTANYL [Concomitant]

REACTIONS (10)
  - DRUG EFFECT PROLONGED [None]
  - DRUG EXPOSURE DURING PREGNANCY [None]
  - DRUG INTERACTION [None]
  - DYSPNOEA [None]
  - HYPERMAGNESAEMIA [None]
  - HYPOVENTILATION [None]
  - MUSCLE TWITCHING [None]
  - NEUROMUSCULAR BLOCKADE [None]
  - PREMATURE SEPARATION OF PLACENTA [None]
  - RESPIRATORY DISORDER [None]
